FAERS Safety Report 12526146 (Version 1)
Quarter: 2016Q3

REPORT INFORMATION
  Report Type: Spontaneous
  Country: US (occurrence: US)
  Receive Date: 20160705
  Receipt Date: 20160705
  Transmission Date: 20161109
  Serious: No
  Sender: FDA-Public Use
  Company Number: US-PFIZER INC-2016301893

PATIENT
  Sex: Male

DRUGS (1)
  1. VIAGRA [Suspect]
     Active Substance: SILDENAFIL CITRATE

REACTIONS (5)
  - Headache [Unknown]
  - Eye swelling [Unknown]
  - Ocular hyperaemia [Unknown]
  - Nausea [Unknown]
  - Head discomfort [Unknown]
